FAERS Safety Report 4839352-7 (Version None)
Quarter: 2005Q4

REPORT INFORMATION
  Report Type: 
  Country: None (occurrence: None)
  Receive Date: 20051129
  Receipt Date: 20050128
  Transmission Date: 20060501
  Serious: No
  Sender: FDA-Public Use
  Company Number: US-GLAXOSMITHKLINE-A0542875A

PATIENT
  Age: 62 Year
  Sex: Female
  Weight: 88 kg

DRUGS (9)
  1. WELLBUTRIN SR [Suspect]
     Indication: DRUG USE FOR UNKNOWN INDICATION
     Dosage: 150MG TWICE PER DAY
     Route: 048
  2. AVELOX [Suspect]
  3. CLINDAMYCIN [Suspect]
  4. SINGULAIR [Concomitant]
  5. RANITIDINE [Concomitant]
  6. ASPIRIN [Concomitant]
  7. AZMACORT [Concomitant]
  8. ALBUTEROL [Concomitant]
  9. MULTI-VITAMIN [Concomitant]

REACTIONS (1)
  - RASH [None]
